FAERS Safety Report 25712229 (Version 1)
Quarter: 2025Q3

REPORT INFORMATION
  Report Type: Spontaneous
  Country: EU (occurrence: EU)
  Receive Date: 20250821
  Receipt Date: 20250821
  Transmission Date: 20251021
  Serious: Yes (Other)
  Sender: MYLAN
  Company Number: None

PATIENT
  Age: 49 Year
  Sex: Male

DRUGS (24)
  1. TRAMADOL [Interacting]
     Active Substance: TRAMADOL
     Indication: Sciatica
     Dosage: 100 MILLIGRAM, Q8H
     Dates: start: 20250602
  2. TRAMADOL [Interacting]
     Active Substance: TRAMADOL
     Dosage: 100 MILLIGRAM, Q8H
     Route: 048
     Dates: start: 20250602
  3. TRAMADOL [Interacting]
     Active Substance: TRAMADOL
     Dosage: 100 MILLIGRAM, Q8H
     Route: 048
     Dates: start: 20250602
  4. TRAMADOL [Interacting]
     Active Substance: TRAMADOL
     Dosage: 100 MILLIGRAM, Q8H
     Dates: start: 20250602
  5. PREGABALIN [Interacting]
     Active Substance: PREGABALIN
     Indication: Sciatica
     Dosage: 50 MILLIGRAM, BID
     Dates: start: 20250602
  6. PREGABALIN [Interacting]
     Active Substance: PREGABALIN
     Dosage: 50 MILLIGRAM, BID
     Route: 048
     Dates: start: 20250602
  7. PREGABALIN [Interacting]
     Active Substance: PREGABALIN
     Dosage: 50 MILLIGRAM, BID
     Route: 048
     Dates: start: 20250602
  8. PREGABALIN [Interacting]
     Active Substance: PREGABALIN
     Dosage: 50 MILLIGRAM, BID
     Dates: start: 20250602
  9. ARCOXIA [Interacting]
     Active Substance: ETORICOXIB
     Indication: Sciatica
     Dosage: 120 MILLIGRAM, QD
     Dates: start: 20250602
  10. ARCOXIA [Interacting]
     Active Substance: ETORICOXIB
     Dosage: 120 MILLIGRAM, QD
     Route: 048
     Dates: start: 20250602
  11. ARCOXIA [Interacting]
     Active Substance: ETORICOXIB
     Dosage: 120 MILLIGRAM, QD
     Route: 048
     Dates: start: 20250602
  12. ARCOXIA [Interacting]
     Active Substance: ETORICOXIB
     Dosage: 120 MILLIGRAM, QD
     Dates: start: 20250602
  13. METHOCARBAMOL [Interacting]
     Active Substance: METHOCARBAMOL
     Indication: Sciatica
     Dosage: 500 MILLIGRAM, Q8H
     Dates: start: 20250602
  14. METHOCARBAMOL [Interacting]
     Active Substance: METHOCARBAMOL
     Dosage: 500 MILLIGRAM, Q8H
     Route: 048
     Dates: start: 20250602
  15. METHOCARBAMOL [Interacting]
     Active Substance: METHOCARBAMOL
     Dosage: 500 MILLIGRAM, Q8H
     Route: 048
     Dates: start: 20250602
  16. METHOCARBAMOL [Interacting]
     Active Substance: METHOCARBAMOL
     Dosage: 500 MILLIGRAM, Q8H
     Dates: start: 20250602
  17. CLONAZEPAM [Interacting]
     Active Substance: CLONAZEPAM
     Indication: Sciatica
     Dosage: 5 GTT DROPS, Q8H (5 DROPS, Q8H)
     Dates: start: 20250602
  18. CLONAZEPAM [Interacting]
     Active Substance: CLONAZEPAM
     Dosage: 5 GTT DROPS, Q8H (5 DROPS, Q8H)
     Route: 048
     Dates: start: 20250602
  19. CLONAZEPAM [Interacting]
     Active Substance: CLONAZEPAM
     Dosage: 5 GTT DROPS, Q8H (5 DROPS, Q8H)
     Route: 048
     Dates: start: 20250602
  20. CLONAZEPAM [Interacting]
     Active Substance: CLONAZEPAM
     Dosage: 5 GTT DROPS, Q8H (5 DROPS, Q8H)
     Dates: start: 20250602
  21. ACETAMINOPHEN [Concomitant]
     Active Substance: ACETAMINOPHEN
     Indication: Sciatica
     Dosage: 1 GRAM, Q8H
     Dates: start: 20250602
  22. ACETAMINOPHEN [Concomitant]
     Active Substance: ACETAMINOPHEN
     Dosage: 1 GRAM, Q8H
     Route: 048
     Dates: start: 20250602
  23. ACETAMINOPHEN [Concomitant]
     Active Substance: ACETAMINOPHEN
     Dosage: 1 GRAM, Q8H
     Route: 048
     Dates: start: 20250602
  24. ACETAMINOPHEN [Concomitant]
     Active Substance: ACETAMINOPHEN
     Dosage: 1 GRAM, Q8H
     Dates: start: 20250602

REACTIONS (3)
  - Speech disorder [Unknown]
  - Dizziness [Unknown]
  - Somnolence [Unknown]

NARRATIVE: CASE EVENT DATE: 20250606
